FAERS Safety Report 9536280 (Version 1)
Quarter: 2013Q3

REPORT INFORMATION
  Report Type: Spontaneous
  Country: US (occurrence: None)
  Receive Date: 20130917
  Receipt Date: 20130917
  Transmission Date: 20140515
  Serious: No
  Sender: FDA-Public Use
  Company Number: None

PATIENT
  Age: 61 Year
  Sex: Female
  Weight: 90.27 kg

DRUGS (1)
  1. AZITHROMYCIN 250 MG [Suspect]
     Indication: CERUMEN IMPACTION
     Dosage: 2 ON FIRST DAY, 1 PER DAY AFTER (2- 8/31/2013, 1 ON 9/1/2013)
     Dates: start: 20130831, end: 20130901

REACTIONS (1)
  - Fatigue [None]
